FAERS Safety Report 4272660-X (Version None)
Quarter: 2004Q1

REPORT INFORMATION
  Report Type: 
  Country: None (occurrence: None)
  Receive Date: 20040115
  Receipt Date: 20040115
  Transmission Date: 20041129
  Serious: No
  Sender: FDA-Public Use
  Company Number: None

PATIENT
  Age: 18 Year
  Sex: Male

DRUGS (1)
  1. CRANTEX LA [Suspect]
     Dosage: LA TAB PO
     Route: 048
     Dates: start: 20040107, end: 20040114

REACTIONS (1)
  - PHARMACEUTICAL PRODUCT COMPLAINT [None]
